FAERS Safety Report 5372614-6 (Version None)
Quarter: 2007Q2

REPORT INFORMATION
  Report Type: 
  Country: None (occurrence: None)
  Receive Date: 20070626
  Receipt Date: 20070614
  Transmission Date: 20071010
  Serious: Yes (Life-Threatening, Hospitalization)
  Sender: FDA-Public Use
  Company Number: GXKR2007CH05160

PATIENT
  Age: 71 Year
  Sex: Male

DRUGS (7)
  1. EPRIL (NGX)(ENALAPRIL MALEATE) TABLET, 20MG [Suspect]
     Indication: ESSENTIAL HYPERTENSION
     Dosage: 20 MG, QD, ORAL
     Route: 048
  2. BELOC-ZOK(METOPROLOL SUCCINATE) SLOW RELEASE TABLET, 25MG [Suspect]
     Indication: ESSENTIAL HYPERTENSION
     Dosage: 12.5 MG, QD, ORAL
     Route: 048
  3. TOREM(TORASEMIDE) TABLET, 10MG [Suspect]
     Indication: ESSENTIAL HYPERTENSION
     Dosage: 10 MG, QD, ORAL
     Route: 048
  4. DEPAKINE CHRONO (VALPROATE SODIUM, VALPROIC ACID) TABLET [Concomitant]
  5. DIGOXIN [Concomitant]
  6. ACENOCOUMAROL (ACENOCOUMAROL) UNKNOWN [Concomitant]
  7. INSULATARD HM (INSULIN HUMAN INJECTION, ISOPHANE) [Concomitant]

REACTIONS (7)
  - ACUTE RESPIRATORY FAILURE [None]
  - ATRIAL FIBRILLATION [None]
  - DRUG INEFFECTIVE [None]
  - HYPERTENSION [None]
  - METABOLIC ACIDOSIS [None]
  - PNEUMONIA [None]
  - PULMONARY OEDEMA [None]
